FAERS Safety Report 21628266 (Version 1)
Quarter: 2022Q4

REPORT INFORMATION
  Report Type: Spontaneous
  Country: GR (occurrence: GR)
  Receive Date: 20221122
  Receipt Date: 20221122
  Transmission Date: 20230113
  Serious: Yes (Disabling, Other)
  Sender: FDA-Public Use
  Company Number: GR-MYLANLABS-2022M1129358

PATIENT
  Age: 18 Year
  Sex: Male

DRUGS (1)
  1. CYSTAGON [Suspect]
     Active Substance: CYSTEAMINE BITARTRATE
     Indication: Cystinosis
     Dosage: UNK, BID (TWICE DAILY), DELAYED RELASE
     Route: 065

REACTIONS (2)
  - Chronic kidney disease [Unknown]
  - Treatment noncompliance [Unknown]
